FAERS Safety Report 6811055-9 (Version None)
Quarter: 2010Q2

REPORT INFORMATION
  Report Type: 
  Country: None (occurrence: None)
  Receive Date: 20100630
  Receipt Date: 20081210
  Transmission Date: 20101027
  Serious: No
  Sender: FDA-Public Use
  Company Number: US-PFIZER INC-2008155064

PATIENT
  Sex: Female

DRUGS (2)
  1. NICOTROL [Suspect]
  2. WELLBUTRIN [Suspect]

REACTIONS (1)
  - INSOMNIA [None]
